FAERS Safety Report 5729780-X (Version None)
Quarter: 2008Q2

REPORT INFORMATION
  Report Type: 
  Country: None (occurrence: None)
  Receive Date: 20080501
  Receipt Date: 20080417
  Transmission Date: 20081010
  Serious: Yes (Other)
  Sender: FDA-Public Use
  Company Number: 2007S1008382

PATIENT
  Age: 26 Year
  Sex: Female

DRUGS (9)
  1. MERCAPTAMINE BITARTRATE (MERCAPTAMINE BTTARTRATE) (150 MG) [Suspect]
     Indication: CYSTINOSIS
     Dosage: 1200 MG;DAILY;ORAL
     Route: 048
  2. PREDNISOLONE [Concomitant]
  3. AZATHIOPRINE [Concomitant]
  4. CYCLOSPORINE [Concomitant]
  5. 1-ALPHA [Concomitant]
  6. LOSARTAN POTASSIUM [Concomitant]
  7. AMLODIPINE [Concomitant]
  8. LEVOTHYROXINE SODIUM [Concomitant]
  9. CYSTEAMINE /00492501/ [Concomitant]

REACTIONS (3)
  - DIABETES MELLITUS [None]
  - PANCREATITIS [None]
  - RENAL FAILURE [None]
